FAERS Safety Report 17680384 (Version 1)
Quarter: 2020Q2

REPORT INFORMATION
  Report Type: Spontaneous
  Country: US (occurrence: US)
  Receive Date: 20200417
  Receipt Date: 20200417
  Transmission Date: 20200714
  Serious: No
  Sender: FDA-Public Use
  Company Number: US-TEVA-2020-US-1222094

PATIENT

DRUGS (1)
  1. MESALAMINE. [Suspect]
     Active Substance: MESALAMINE
     Dosage: 1.2 G DELAYED RELEASE TABLETS
     Route: 065

REACTIONS (3)
  - Product coating issue [Unknown]
  - Discomfort [Unknown]
  - Flatulence [Unknown]
